FAERS Safety Report 13267656 (Version 1)
Quarter: 2017Q1

REPORT INFORMATION
  Report Type: Spontaneous
  Country: US (occurrence: US)
  Receive Date: 20170224
  Receipt Date: 20170224
  Transmission Date: 20170428
  Serious: No
  Sender: FDA-Public Use
  Company Number: US-PFIZER INC-2017079089

PATIENT

DRUGS (2)
  1. PROTONIX [Suspect]
     Active Substance: PANTOPRAZOLE SODIUM
  2. SINEMET [Interacting]
     Active Substance: CARBIDOPA\LEVODOPA

REACTIONS (2)
  - Drug interaction [Unknown]
  - Feeling jittery [Unknown]
